FAERS Safety Report 7251117-8 (Version None)
Quarter: 2011Q1

REPORT INFORMATION
  Report Type: 
  Country: None (occurrence: None)
  Receive Date: 20110128
  Receipt Date: 20110124
  Transmission Date: 20110831
  Serious: Yes (Other)
  Sender: FDA-Public Use
  Company Number: US-PFIZER INC-2011016964

PATIENT
  Sex: Female
  Weight: 56.689 kg

DRUGS (4)
  1. EFFEXOR [Suspect]
     Dosage: 37.5 MG, 2X/DAY
     Route: 048
     Dates: start: 20101001, end: 20110101
  2. XANAX [Suspect]
     Indication: ANXIETY
     Dosage: 1 MG, UNK
     Route: 048
     Dates: start: 20040101, end: 20110122
  3. IBUPROFEN [Concomitant]
     Dosage: UNK
  4. EFFEXOR [Suspect]
     Dosage: 100 MG, 2X/DAY
     Route: 048
     Dates: start: 20110101, end: 20110119

REACTIONS (8)
  - DIZZINESS [None]
  - SUICIDAL IDEATION [None]
  - PARAESTHESIA [None]
  - SCAB [None]
  - DIARRHOEA [None]
  - BEDRIDDEN [None]
  - IRRITABILITY [None]
  - APHAGIA [None]
